FAERS Safety Report 23901294 (Version 1)
Quarter: 2024Q2

REPORT INFORMATION
  Report Type: Spontaneous
  Country: US (occurrence: None)
  Receive Date: 20240526
  Receipt Date: 20240526
  Transmission Date: 20240715
  Serious: No
  Sender: FDA-Public Use
  Company Number: US-ROCHE-3515999

PATIENT
  Sex: Female

DRUGS (1)
  1. OCREVUS [Suspect]
     Active Substance: OCRELIZUMAB
     Indication: Multiple sclerosis
     Route: 042

REACTIONS (15)
  - Dyspnoea [Unknown]
  - Faeces discoloured [Unknown]
  - Rash [Unknown]
  - Vomiting [Unknown]
  - Anxiety [Unknown]
  - Discomfort [Unknown]
  - Hot flush [Unknown]
  - Aphthous ulcer [Unknown]
  - Pain [Unknown]
  - Fatigue [Unknown]
  - Cognitive disorder [Unknown]
  - Swollen tongue [Unknown]
  - Muscle spasticity [Unknown]
  - Dysphagia [Unknown]
  - Nausea [Unknown]
